FAERS Safety Report 8210966-X (Version None)
Quarter: 2012Q1

REPORT INFORMATION
  Report Type: 
  Country: None (occurrence: None)
  Receive Date: 20120315
  Receipt Date: 20120306
  Transmission Date: 20120608
  Serious: Yes (Other)
  Sender: FDA-Public Use
  Company Number: US-JNJFOC-20111201315

PATIENT
  Sex: Male
  Weight: 57.6 kg

DRUGS (3)
  1. AZATHIOPRINE [Concomitant]
     Indication: CROHN'S DISEASE
     Route: 065
     Dates: start: 20110801, end: 20111023
  2. REMICADE [Suspect]
     Indication: CROHN'S DISEASE
     Route: 042
     Dates: start: 20110929
  3. REMICADE [Suspect]
     Route: 042
     Dates: start: 20111012

REACTIONS (4)
  - ACUTE PULMONARY HISTOPLASMOSIS [None]
  - PAINFUL DEFAECATION [None]
  - HAEMATOCHEZIA [None]
  - ABDOMINAL PAIN [None]
